FAERS Safety Report 17124226 (Version 1)
Quarter: 2019Q4

REPORT INFORMATION
  Report Type: Spontaneous
  Country: DE (occurrence: DE)
  Receive Date: 20191206
  Receipt Date: 20191206
  Transmission Date: 20200122
  Serious: Yes (Hospitalization)
  Sender: FDA-Public Use
  Company Number: DE-SA-2019SA336510

PATIENT
  Age: 49 Year
  Sex: Male

DRUGS (1)
  1. DUPIXENT [Suspect]
     Active Substance: DUPILUMAB
     Dosage: 300 MG
     Dates: start: 20181019

REACTIONS (3)
  - Sleep apnoea syndrome [Recovered/Resolved]
  - Tonsillectomy [Recovered/Resolved]
  - Uvulopalatopharyngoplasty [Recovered/Resolved]

NARRATIVE: CASE EVENT DATE: 20191104
